FAERS Safety Report 6361676-5 (Version None)
Quarter: 2009Q3

REPORT INFORMATION
  Report Type: 
  Country: None (occurrence: None)
  Receive Date: 20090918
  Receipt Date: 20090914
  Transmission Date: 20100115
  Serious: Yes (Hospitalization, Other)
  Sender: FDA-Public Use
  Company Number: US-MERCK-0705USA01923

PATIENT
  Age: 81 Year
  Sex: Female
  Weight: 50 kg

DRUGS (6)
  1. FOSAMAX [Suspect]
     Indication: OSTEOPOROSIS
     Route: 048
     Dates: start: 19960213
  2. FOSAMAX [Suspect]
     Route: 048
     Dates: start: 20050106, end: 20060325
  3. COUMADIN [Concomitant]
     Route: 065
     Dates: start: 20020101, end: 20060101
  4. CEPHALEXIN [Concomitant]
     Route: 065
     Dates: start: 19950101, end: 20070101
  5. ATENOLOL [Concomitant]
     Route: 065
     Dates: start: 20040101, end: 20070101
  6. HYDROCODONE BITARTRATE [Concomitant]
     Route: 065
     Dates: start: 19940101, end: 20070101

REACTIONS (40)
  - ANXIETY [None]
  - ARTERIOSCLEROSIS CORONARY ARTERY [None]
  - ARTHRITIS [None]
  - ASTHMA [None]
  - ATRIAL FIBRILLATION [None]
  - BACK PAIN [None]
  - BRONCHIAL HYPERREACTIVITY [None]
  - BRONCHITIS CHRONIC [None]
  - CATARACT [None]
  - CERUMEN IMPACTION [None]
  - CHEST PAIN [None]
  - CONTUSION [None]
  - DYSPNOEA [None]
  - DYSPNOEA EXERTIONAL [None]
  - EPISTAXIS [None]
  - FALL [None]
  - FEAR [None]
  - HYPERTENSION [None]
  - JOINT SPRAIN [None]
  - LARYNGOSPASM [None]
  - LIMB INJURY [None]
  - LUMBAR SPINAL STENOSIS [None]
  - MACULAR DEGENERATION [None]
  - MOUTH HAEMORRHAGE [None]
  - MYOCARDIAL INFARCTION [None]
  - NEUROPATHY PERIPHERAL [None]
  - OPEN WOUND [None]
  - OSTEOMYELITIS [None]
  - OSTEONECROSIS [None]
  - PAIN IN EXTREMITY [None]
  - PNEUMONIA [None]
  - RESPIRATORY FAILURE [None]
  - RESPIRATORY TRACT INFECTION [None]
  - SKIN CANCER [None]
  - SKIN LACERATION [None]
  - SPINAL COMPRESSION FRACTURE [None]
  - SUPRAVENTRICULAR EXTRASYSTOLES [None]
  - TACHYCARDIA [None]
  - TRAUMATIC BRAIN INJURY [None]
  - VERTIGO POSITIONAL [None]
